FAERS Safety Report 8315022-8 (Version None)
Quarter: 2012Q2

REPORT INFORMATION
  Report Type: 
  Country: None (occurrence: None)
  Receive Date: 20120426
  Receipt Date: 20120419
  Transmission Date: 20120825
  Serious: Yes (Other)
  Sender: FDA-Public Use
  Company Number: US-ABBOTT-12P-163-0927116-00

PATIENT
  Sex: Female

DRUGS (2)
  1. LIALDA [Concomitant]
     Indication: PRODUCT USED FOR UNKNOWN INDICATION
  2. HUMIRA [Suspect]
     Indication: CROHN'S DISEASE
     Dates: start: 20101201, end: 20120301

REACTIONS (2)
  - VISION BLURRED [None]
  - VISUAL IMPAIRMENT [None]
